FAERS Safety Report 15710967 (Version 1)
Quarter: 2018Q4

REPORT INFORMATION
  Report Type: Spontaneous
  Country: US (occurrence: US)
  Receive Date: 20181211
  Receipt Date: 20181211
  Transmission Date: 20190205
  Serious: No
  Sender: FDA-Public Use
  Company Number: US-PERNIX THERAPEUTICS-US-2018PER001665

PATIENT
  Sex: Male

DRUGS (4)
  1. HYDROCODONE BITARTRATE. [Suspect]
     Active Substance: HYDROCODONE BITARTRATE
     Indication: PRODUCT USED FOR UNKNOWN INDICATION
     Dosage: UNK
     Dates: start: 201802, end: 201803
  2. MORPHINE [Suspect]
     Active Substance: MORPHINE
     Indication: PRODUCT USED FOR UNKNOWN INDICATION
     Dosage: UNK
     Dates: start: 201802, end: 201803
  3. GABAPENTIN. [Suspect]
     Active Substance: GABAPENTIN
     Dosage: 360 MG, QD
     Dates: start: 2018
  4. GABAPENTIN. [Suspect]
     Active Substance: GABAPENTIN
     Indication: PRODUCT USED FOR UNKNOWN INDICATION
     Dosage: UNK
     Dates: end: 2018

REACTIONS (3)
  - Heart rate increased [Unknown]
  - Tremor [Unknown]
  - Feeling jittery [Unknown]

NARRATIVE: CASE EVENT DATE: 2018
